FAERS Safety Report 7654846-7 (Version None)
Quarter: 2011Q3

REPORT INFORMATION
  Report Type: 
  Country: None (occurrence: None)
  Receive Date: 20110803
  Receipt Date: 20110803
  Transmission Date: 20111222
  Serious: Yes (Hospitalization)
  Sender: FDA-Public Use
  Company Number: None

PATIENT
  Age: 44 Year
  Sex: Female
  Weight: 144.5 kg

DRUGS (1)
  1. NITROPRUSSIDE 50MG/2 ML INJECTION HOSPIRA [Suspect]
     Indication: HYPERTENSION
     Dosage: NITROPRUSSIDE TITRATED IV
     Route: 042
     Dates: start: 20110709, end: 20110718

REACTIONS (1)
  - BLOOD CYANIDE INCREASED [None]
